FAERS Safety Report 5380380-3 (Version None)
Quarter: 2007Q3

REPORT INFORMATION
  Report Type: 
  Country: None (occurrence: None)
  Receive Date: 20070706
  Receipt Date: 20070523
  Transmission Date: 20080115
  Serious: No
  Sender: FDA-Public Use
  Company Number: A0652622A

PATIENT
  Age: 61 Year
  Sex: Female

DRUGS (6)
  1. TYKERB [Suspect]
     Indication: BREAST CANCER
     Dosage: 5TAB PER DAY
     Route: 048
     Dates: start: 20070410
  2. ACTOS [Concomitant]
  3. MAVIK [Concomitant]
  4. MOBIC [Concomitant]
  5. ZOCOR [Concomitant]
  6. XELODA [Concomitant]

REACTIONS (9)
  - DIARRHOEA [None]
  - MOUTH ULCERATION [None]
  - NAUSEA [None]
  - OESOPHAGEAL PAIN [None]
  - PHARMACEUTICAL PRODUCT COMPLAINT [None]
  - SENSITIVITY OF TEETH [None]
  - SKIN DISCOLOURATION [None]
  - TONGUE BLACK HAIRY [None]
  - VOMITING [None]
